FAERS Safety Report 4860826-7 (Version None)
Quarter: 2005Q4

REPORT INFORMATION
  Report Type: 
  Country: None (occurrence: None)
  Receive Date: 20051216
  Receipt Date: 20051209
  Transmission Date: 20060501
  Serious: Yes (Hospitalization)
  Sender: FDA-Public Use
  Company Number: 163-20785-05120001

PATIENT
  Age: 51 Year
  Sex: Female

DRUGS (1)
  1. THALOMID [Suspect]
     Indication: MALIGNANT MELANOMA STAGE IV
     Dosage: 300 MG, DAILY, ORAL
     Route: 048
     Dates: start: 20050801

REACTIONS (3)
  - CEREBROVASCULAR ACCIDENT [None]
  - METASTASES TO CENTRAL NERVOUS SYSTEM [None]
  - PARALYSIS [None]
